FAERS Safety Report 17211350 (Version 1)
Quarter: 2019Q4

REPORT INFORMATION
  Report Type: Spontaneous
  Country: US (occurrence: US)
  Receive Date: 20191228
  Receipt Date: 20191228
  Transmission Date: 20200122
  Serious: Yes (Other)
  Sender: FDA-Public Use
  Company Number: US-UCBSA-2019054591

PATIENT
  Sex: Male
  Weight: 83 kg

DRUGS (7)
  1. NEUPRO [Suspect]
     Active Substance: ROTIGOTINE
     Dosage: UNK
  2. NEUPRO [Suspect]
     Active Substance: ROTIGOTINE
     Indication: PARKINSON^S DISEASE
     Dosage: 8 MILLIGRAM, UNK
     Route: 062
     Dates: end: 2016
  3. NEUPRO [Suspect]
     Active Substance: ROTIGOTINE
     Dosage: RESTARTED 8 MILLIGRAM, UNK
     Route: 062
  4. CARBIDOPA LEVODOPA [Concomitant]
     Active Substance: CARBIDOPA\LEVODOPA
  5. CLONAZEPAM. [Concomitant]
     Active Substance: CLONAZEPAM
  6. EXELON [Concomitant]
     Active Substance: RIVASTIGMINE TARTRATE
  7. MELATONIN [Concomitant]
     Active Substance: MELATONIN

REACTIONS (6)
  - Fall [Not Recovered/Not Resolved]
  - Paraphilia [Not Recovered/Not Resolved]
  - Insomnia [Not Recovered/Not Resolved]
  - Loss of consciousness [Not Recovered/Not Resolved]
  - Tremor [Not Recovered/Not Resolved]
  - Product dose omission [Unknown]
